FAERS Safety Report 8276933-5 (Version None)
Quarter: 2012Q2

REPORT INFORMATION
  Report Type: 
  Country: None (occurrence: None)
  Receive Date: 20120412
  Receipt Date: 20120402
  Transmission Date: 20120825
  Serious: Yes (Hospitalization)
  Sender: FDA-Public Use
  Company Number: CL-ROCHE-1056184

PATIENT
  Sex: Female
  Weight: 74 kg

DRUGS (4)
  1. COPEGUS [Suspect]
     Indication: HEPATITIS C
     Route: 048
     Dates: start: 20120125, end: 20120321
  2. INSULIN [Concomitant]
     Indication: DIABETES MELLITUS
     Route: 058
  3. ENALAPRIL MALEATE [Concomitant]
     Indication: HYPERTENSION
     Route: 048
  4. PEGINTERFERON ALFA-2A [Suspect]
     Indication: HEPATITIS C
     Route: 058
     Dates: start: 20120125, end: 20120321

REACTIONS (3)
  - WHITE BLOOD CELL COUNT DECREASED [None]
  - EPISTAXIS [None]
  - PLATELET COUNT DECREASED [None]
